FAERS Safety Report 5990301-8 (Version None)
Quarter: 2008Q4

REPORT INFORMATION
  Report Type: 
  Country: None (occurrence: None)
  Receive Date: 20081211
  Receipt Date: 20081201
  Transmission Date: 20090506
  Serious: Yes (Other)
  Sender: FDA-Public Use
  Company Number: IT-AMGEN-US321603

PATIENT
  Sex: Female

DRUGS (3)
  1. ENBREL [Suspect]
     Indication: RHEUMATOID ARTHRITIS
     Dosage: 50 MG WEEKLY
     Route: 058
     Dates: start: 20070201, end: 20080701
  2. EUTIROX [Concomitant]
     Dosage: 125 MG
     Route: 048
  3. MEDROL [Concomitant]
     Dosage: 4 MG
     Route: 048
     Dates: start: 20070201, end: 20080701

REACTIONS (1)
  - ALANINE AMINOTRANSFERASE INCREASED [None]
